FAERS Safety Report 4280264-8 (Version None)
Quarter: 2004Q1

REPORT INFORMATION
  Report Type: 
  Country: None (occurrence: None)
  Receive Date: 20040126
  Receipt Date: 20040113
  Transmission Date: 20041129
  Serious: Yes (Death)
  Sender: FDA-Public Use
  Company Number: 204172

PATIENT
  Age: 84 Year
  Sex: Female

DRUGS (1)
  1. MABTHERA (RITUXIMAB) [Suspect]
     Indication: NON-HODGKIN'S LYMPHOMA
     Dosage: INTRAVENOUS
     Route: 042

REACTIONS (3)
  - OEDEMA PERIPHERAL [None]
  - PULMONARY OEDEMA [None]
  - RASH [None]
